FAERS Safety Report 7803306-9 (Version None)
Quarter: 2011Q4

REPORT INFORMATION
  Report Type: 
  Country: None (occurrence: None)
  Receive Date: 20111007
  Receipt Date: 20111003
  Transmission Date: 20120403
  Serious: Yes (Hospitalization)
  Sender: FDA-Public Use
  Company Number: FR-NAPPMUNDI-GBR-2011-0008887

PATIENT
  Sex: Female

DRUGS (4)
  1. NEXIUM [Concomitant]
     Indication: GASTROOESOPHAGEAL REFLUX DISEASE
     Dosage: 20 MG, DAILY
     Route: 048
  2. OXYCODONE HCL [Suspect]
     Indication: ABDOMINAL PAIN UPPER
     Dosage: 5 MG, TID
     Route: 048
     Dates: end: 20110914
  3. OXYNORM 10 MG, GELULE [Suspect]
     Indication: ABDOMINAL PAIN UPPER
     Dosage: 10 MG, PRN
     Route: 048
     Dates: end: 20110914
  4. ACETAMINOPHEN [Concomitant]
     Indication: ABDOMINAL PAIN UPPER
     Dosage: 500 MG, DAILY
     Route: 048

REACTIONS (2)
  - FAECALOMA [None]
  - INTESTINAL OBSTRUCTION [None]
